FAERS Safety Report 7961960-5 (Version None)
Quarter: 2011Q4

REPORT INFORMATION
  Report Type: 
  Country: None (occurrence: None)
  Receive Date: 20111207
  Receipt Date: 20111205
  Transmission Date: 20120403
  Serious: Yes (Other)
  Sender: FDA-Public Use
  Company Number: BR-ROCHE-1019327

PATIENT
  Sex: Female
  Weight: 58 kg

DRUGS (2)
  1. BONIVA [Suspect]
     Indication: OSTEOPENIA
     Route: 048
  2. BONIVA [Suspect]
     Indication: OSTEOPOROSIS

REACTIONS (1)
  - PARKINSON'S DISEASE [None]
